FAERS Safety Report 4457086-8 (Version None)
Quarter: 2004Q3

REPORT INFORMATION
  Report Type: 
  Country: None (occurrence: None)
  Receive Date: 20040831
  Receipt Date: 20040525
  Transmission Date: 20050211
  Serious: No
  Sender: FDA-Public Use
  Company Number: FABR-10602

PATIENT
  Age: 36 Year
  Sex: Male
  Weight: 89.5 kg

DRUGS (8)
  1. FABRAZYME [Suspect]
     Indication: FABRY'S DISEASE
     Dosage: 70 MG Q2WKS IV
     Route: 042
     Dates: start: 20040507
  2. FABRAZYME [Suspect]
     Indication: FABRY'S DISEASE
     Dosage: 35 MG QWK IV
     Route: 042
     Dates: start: 20031223, end: 20040506
  3. FABRAZYME [Suspect]
     Indication: FABRY'S DISEASE
     Dosage: 70 MG Q2WKS IV
     Route: 042
     Dates: start: 20030910, end: 20031222
  4. OXYCONTIN [Concomitant]
  5. PROZAC [Concomitant]
  6. TOPROL-XL [Concomitant]
  7. ZYPREXA [Concomitant]
  8. LAMISIL [Concomitant]

REACTIONS (3)
  - BLOOD HOMOCYSTEINE INCREASED [None]
  - CHILLS [None]
  - EMOTIONAL DISORDER [None]
